FAERS Safety Report 20684997 (Version 2)
Quarter: 2022Q2

REPORT INFORMATION
  Report Type: Spontaneous
  Country: US (occurrence: US)
  Receive Date: 20220407
  Receipt Date: 20220624
  Transmission Date: 20220721
  Serious: No
  Sender: FDA-Public Use
  Company Number: US-PFIZER INC-202101013288

PATIENT
  Age: 88 Year
  Sex: Female
  Weight: 64.49 kg

DRUGS (2)
  1. IBRANCE [Suspect]
     Active Substance: PALBOCICLIB
     Indication: Breast cancer female
     Dosage: 75 MG, DAILY (DAILYX21 DAYS)
     Route: 048
     Dates: start: 20190127, end: 202104
  2. IBRANCE [Suspect]
     Active Substance: PALBOCICLIB
     Dosage: 75 MG

REACTIONS (4)
  - Pain in extremity [Unknown]
  - Mobility decreased [Unknown]
  - Visual impairment [Unknown]
  - Emotional disorder [Unknown]

NARRATIVE: CASE EVENT DATE: 20210401
